FAERS Safety Report 16266180 (Version 4)
Quarter: 2020Q4

REPORT INFORMATION
  Report Type: Spontaneous
  Country: US (occurrence: US)
  Receive Date: 20190502
  Receipt Date: 20201022
  Transmission Date: 20210113
  Serious: Yes (Life-Threatening, Hospitalization)
  Sender: FDA-Public Use
  Company Number: US-PFIZER INC-2019184718

PATIENT
  Age: 50 Year
  Sex: Female
  Weight: 41 kg

DRUGS (1)
  1. PREMARIN [Suspect]
     Active Substance: ESTROGENS, CONJUGATED
     Indication: BONE DISORDER
     Dosage: 0.625 MG, 1X/DAY (1 DOSE FORM (DF) ONCE A DAY)
     Route: 048

REACTIONS (5)
  - Gastrointestinal infection [Not Recovered/Not Resolved]
  - Gastric disorder [Not Recovered/Not Resolved]
  - Product use in unapproved indication [Unknown]
  - Volvulus [Not Recovered/Not Resolved]
  - Off label use [Unknown]

NARRATIVE: CASE EVENT DATE: 20181106
